FAERS Safety Report 4677081-3 (Version None)
Quarter: 2005Q2

REPORT INFORMATION
  Report Type: 
  Country: None (occurrence: None)
  Receive Date: 20050525
  Receipt Date: 20050404
  Transmission Date: 20051028
  Serious: No
  Sender: FDA-Public Use
  Company Number: SU-2005-003388

PATIENT
  Age: 48 Year
  Sex: Female
  Weight: 132.4503 kg

DRUGS (3)
  1. BENICAR [Suspect]
     Indication: HYPERTENSION
     Dosage: 40 MG QD PO
     Route: 048
     Dates: start: 20050301
  2. ALLOPURINOL [Concomitant]
  3. DIOVAN [Concomitant]

REACTIONS (2)
  - INITIAL INSOMNIA [None]
  - PARAESTHESIA [None]
